FAERS Safety Report 9178846 (Version 1)
Quarter: 2012Q4

REPORT INFORMATION
  Report Type: 
  Country: US (occurrence: US)
  Receive Date: 20121029
  Receipt Date: 20121029
  Transmission Date: 20130627
  Serious: No
  Sender: FDA-Public Use
  Company Number: US-009507513-1210USA004296

PATIENT
  Age: 40 Year
  Sex: Female

DRUGS (2)
  1. SAPHRIS [Suspect]
     Indication: AFFECTIVE DISORDER
     Dosage: 10 mg, hs
     Dates: start: 20120925, end: 20121001
  2. TRAZODONE HYDROCHLORIDE [Concomitant]

REACTIONS (2)
  - Skin ulcer [Unknown]
  - Inappropriate schedule of drug administration [Unknown]
